FAERS Safety Report 19024757 (Version 2)
Quarter: 2021Q1

REPORT INFORMATION
  Report Type: Spontaneous
  Country: US (occurrence: US)
  Receive Date: 20210318
  Receipt Date: 20210331
  Transmission Date: 20210420
  Serious: No
  Sender: FDA-Public Use
  Company Number: US-GLAXOSMITHKLINE-US2021AMR063746

PATIENT
  Sex: Female

DRUGS (1)
  1. ZEJULA [Suspect]
     Active Substance: NIRAPARIB
     Indication: FALLOPIAN TUBE CANCER
     Dosage: 300 MG, QD
     Dates: start: 20210312

REACTIONS (8)
  - Feeling abnormal [Unknown]
  - Sleep disorder [Unknown]
  - Nausea [Unknown]
  - Vomiting [Unknown]
  - Constipation [Not Recovered/Not Resolved]
  - Cognitive disorder [Unknown]
  - Incorrect dose administered [Unknown]
  - Abdominal pain upper [Not Recovered/Not Resolved]
